FAERS Safety Report 10635966 (Version 1)
Quarter: 2014Q4

REPORT INFORMATION
  Report Type: Spontaneous
  Country: US (occurrence: US)
  Receive Date: 20141205
  Receipt Date: 20141205
  Transmission Date: 20150529
  Serious: No
  Sender: FDA-Public Use
  Company Number: US-GILEAD-2014-0125540

PATIENT
  Age: 60 Year
  Sex: Female
  Weight: 76.19 kg

DRUGS (5)
  1. ATIVAN [Concomitant]
     Active Substance: LORAZEPAM
     Indication: SLEEP DISORDER
     Dosage: 1 DF, QHS
     Route: 048
     Dates: start: 2014
  2. SOVALDI [Suspect]
     Active Substance: SOFOSBUVIR
     Indication: HEPATITIS C
     Route: 065
  3. MOTRIN [Concomitant]
     Active Substance: IBUPROFEN
     Dosage: UNK, PRN
  4. TYLENOL [Concomitant]
     Active Substance: ACETAMINOPHEN
  5. OLYSIO [Suspect]
     Active Substance: SIMEPREVIR
     Indication: HEPATITIS C
     Route: 048

REACTIONS (1)
  - Off label use [Unknown]
